FAERS Safety Report 25323408 (Version 2)
Quarter: 2025Q2

REPORT INFORMATION
  Report Type: Report from Study
  Country: AR (occurrence: AR)
  Receive Date: 20250516
  Receipt Date: 20250602
  Transmission Date: 20250717
  Serious: Yes (Other)
  Sender: EMD SERONO INC
  Company Number: AR-Merck Healthcare KGaA-2025023523

PATIENT
  Age: 63 Year
  Sex: Female

DRUGS (1)
  1. MAVENCLAD [Suspect]
     Active Substance: CLADRIBINE
     Indication: Multiple sclerosis

REACTIONS (3)
  - Immunosuppression [Recovering/Resolving]
  - Allergic cough [Recovered/Resolved]
  - Presyncope [Recovering/Resolving]

NARRATIVE: CASE EVENT DATE: 20250501
